FAERS Safety Report 6613195-6 (Version None)
Quarter: 2010Q1

REPORT INFORMATION
  Report Type: 
  Country: None (occurrence: None)
  Receive Date: 20100304
  Receipt Date: 20100218
  Transmission Date: 20100710
  Serious: Yes (Hospitalization)
  Sender: FDA-Public Use
  Company Number: AU-ELI_LILLY_AND_COMPANY-AU201001005664

PATIENT
  Sex: Male
  Weight: 94 kg

DRUGS (16)
  1. GEMCITABINE HCL [Suspect]
     Indication: PANCREATIC CARCINOMA
     Dosage: 2200 MG, UNK
     Dates: start: 20090824, end: 20100111
  2. PACLITAXEL [Suspect]
     Indication: PANCREATIC CARCINOMA
     Dosage: 275 MG, UNK
     Dates: start: 20090824, end: 20100111
  3. ALLOPURINOL [Concomitant]
     Indication: GOUT
     Dosage: UNK, UNK
     Route: 048
     Dates: start: 20090401
  4. DOMPERIDONE [Concomitant]
     Indication: PAIN
     Dosage: UNK, UNK
     Route: 048
     Dates: start: 20090729
  5. INDOMETHACIN [Concomitant]
     Indication: PAIN
     Route: 048
     Dates: start: 20090401
  6. THIAMINE [Concomitant]
     Indication: PROPHYLAXIS
     Route: 048
  7. GRANISETRON [Concomitant]
     Indication: PROPHYLAXIS
     Route: 048
     Dates: start: 20090824
  8. METOCLOPRAMIDE [Concomitant]
     Indication: NAUSEA
     Route: 048
     Dates: start: 20091130
  9. LOPERAMIDE HYDROCHLORIDE [Concomitant]
     Indication: DIARRHOEA
     Dates: start: 20090826
  10. COLOXYL WITH SENNA [Concomitant]
     Indication: CONSTIPATION
     Route: 048
     Dates: start: 20090827
  11. HYOSCINE HBR HYT [Concomitant]
     Indication: NAUSEA
     Route: 048
     Dates: start: 20091221, end: 20100110
  12. PARACETAMOL [Concomitant]
     Indication: PROPHYLAXIS
     Route: 048
     Dates: start: 20091230
  13. FUROSEMIDE [Concomitant]
     Indication: OEDEMA
     Route: 048
     Dates: start: 20100101, end: 20100101
  14. ROXITHROMYCIN [Concomitant]
     Indication: LOWER RESPIRATORY TRACT INFECTION
     Route: 048
     Dates: start: 20100116
  15. CEPHALEXIN [Concomitant]
     Indication: LOWER RESPIRATORY TRACT INFECTION
     Route: 048
     Dates: start: 20100116
  16. RED BLOOD CELLS [Concomitant]
     Indication: ANAEMIA
     Dates: start: 20100101, end: 20100101

REACTIONS (1)
  - PLEURAL EFFUSION [None]
